FAERS Safety Report 9463687 (Version 4)
Quarter: 2013Q4

REPORT INFORMATION
  Report Type: Report from Study
  Country: FR (occurrence: FR)
  Receive Date: 20130819
  Receipt Date: 20131001
  Transmission Date: 20140711
  Serious: Yes (Hospitalization)
  Sender: FDA-Public Use
  Company Number: PHHY2013FR087826

PATIENT
  Age: 6 Year
  Sex: Female
  Weight: 20.4 kg

DRUGS (1)
  1. ICL670A [Suspect]
     Indication: SICKLE CELL ANAEMIA
     Dosage: 500 MG, EVERY 2 DAYS
     Route: 048
     Dates: start: 20100509

REACTIONS (5)
  - Viral infection [Unknown]
  - Gastroenteritis [Recovered/Resolved]
  - Pyrexia [Recovered/Resolved]
  - Vomiting [Recovered/Resolved]
  - C-reactive protein increased [Unknown]
